FAERS Safety Report 7437390-1 (Version None)
Quarter: 2011Q2

REPORT INFORMATION
  Report Type: 
  Country: None (occurrence: None)
  Receive Date: 20110426
  Receipt Date: 20110418
  Transmission Date: 20111010
  Serious: Yes (Hospitalization, Other)
  Sender: FDA-Public Use
  Company Number: US-AMGEN-QUU390669

PATIENT
  Age: 53 Year
  Sex: Male
  Weight: 83.5 kg

DRUGS (3)
  1. FOLIC ACID [Concomitant]
     Dosage: 1 MG, QD
     Route: 048
  2. ENBREL [Suspect]
     Indication: PSORIATIC ARTHROPATHY
     Dosage: 50 MG, QWK
     Route: 058
     Dates: start: 20080801, end: 20110401
  3. METHOTREXATE [Concomitant]
     Dosage: 2.5 MG, QWK
     Route: 048

REACTIONS (28)
  - COMA [None]
  - CEREBROVASCULAR ACCIDENT [None]
  - HAEMORRHAGE INTRACRANIAL [None]
  - PETIT MAL EPILEPSY [None]
  - BLINDNESS [None]
  - ENTEROCOCCAL INFECTION [None]
  - ARRHYTHMIA [None]
  - INTRAVENTRICULAR HAEMORRHAGE [None]
  - ARTHRALGIA [None]
  - CSF CULTURE POSITIVE [None]
  - UPPER RESPIRATORY TRACT INFECTION [None]
  - ANXIETY [None]
  - POST PROCEDURAL COMPLICATION [None]
  - MENTAL STATUS CHANGES POSTOPERATIVE [None]
  - NASOPHARYNGITIS [None]
  - COGNITIVE DISORDER [None]
  - PROCEDURAL COMPLICATION [None]
  - BRAIN OEDEMA [None]
  - DIZZINESS [None]
  - PAIN IN EXTREMITY [None]
  - JOINT SWELLING [None]
  - JOINT CREPITATION [None]
  - TINNITUS [None]
  - CEREBROVASCULAR ARTERIOVENOUS MALFORMATION [None]
  - HYPOAESTHESIA [None]
  - HAEMATOCRIT ABNORMAL [None]
  - HYPONATRAEMIA [None]
  - OEDEMA PERIPHERAL [None]
